FAERS Safety Report 13341003 (Version 2)
Quarter: 2017Q2

REPORT INFORMATION
  Report Type: Spontaneous
  Country: US (occurrence: CO)
  Receive Date: 20170316
  Receipt Date: 20170522
  Transmission Date: 20170830
  Serious: Yes (Hospitalization)
  Sender: FDA-Public Use
  Company Number: US-AKRIMAX-TIR-2017-0250

PATIENT
  Age: 64 Year
  Sex: Male
  Weight: 93.07 kg

DRUGS (1)
  1. TIROSINT [Suspect]
     Active Substance: LEVOTHYROXINE SODIUM
     Indication: HYPOTHYROIDISM
     Dosage: 200MCG DAILY
     Route: 048
     Dates: start: 20170206, end: 20170212

REACTIONS (3)
  - Hallucination [Unknown]
  - Malaise [Unknown]
  - Anxiety [Unknown]

NARRATIVE: CASE EVENT DATE: 201702
